FAERS Safety Report 20336753 (Version 2)
Quarter: 2022Q1

REPORT INFORMATION
  Report Type: Report from Study
  Country: US (occurrence: US)
  Receive Date: 20220114
  Receipt Date: 20220211
  Transmission Date: 20220424
  Serious: Yes (Death)
  Sender: FDA-Public Use
  Company Number: US-OTSUKA-2022_001704

PATIENT
  Sex: Male

DRUGS (25)
  1. DEXTROMETHORPHAN HYDROBROMIDE\QUINIDINE SULFATE [Suspect]
     Active Substance: DEXTROMETHORPHAN HYDROBROMIDE\QUINIDINE SULFATE
     Indication: Product used for unknown indication
     Dosage: 1 DF, BID (1 CAPSULE EVERY 12 HOURS)
     Route: 065
     Dates: start: 20200318
  2. ARTIFICIAL TEAR [Concomitant]
     Active Substance: LANOLIN\MINERAL OIL\PETROLATUM
     Indication: Dry eye
     Dosage: 2 DROPS IN BOTH EYES AS NEEDED
     Route: 065
     Dates: start: 20191224
  3. ATROPINE SULFATE [Concomitant]
     Active Substance: ATROPINE SULFATE
     Indication: Secretion discharge
     Dosage: 2 DROPS IN BOTH EYES EVERY 2 HRS AS NEEDED
     Route: 065
     Dates: start: 20210213
  4. BENADRYL ALLERGY [Concomitant]
     Active Substance: DIPHENHYDRAMINE HYDROCHLORIDE
     Indication: Pruritus
     Dosage: 1 DF EVERY 6 HOUR AS NEEDED
     Route: 048
     Dates: start: 20191226
  5. BUSPIRONE HCL [Concomitant]
     Active Substance: BUSPIRONE HYDROCHLORIDE
     Indication: Anxiety disorder
     Dosage: 1 DF, BID
     Route: 048
     Dates: start: 20201020
  6. CARBIDOPA AND LEVODOPA [Concomitant]
     Active Substance: CARBIDOPA\LEVODOPA
     Indication: Parkinson^s disease
     Dosage: 1 DF, BID
     Route: 048
     Dates: start: 20190603
  7. FERROUS SULFATE [Concomitant]
     Active Substance: FERROUS SULFATE
     Indication: Supplementation therapy
     Dosage: 325 MG, QD
     Route: 048
     Dates: start: 20190813
  8. VITAMIN C [Concomitant]
     Active Substance: ASCORBIC ACID
     Indication: Wound
     Dosage: 500 MG, BID
     Dates: start: 20201207
  9. GUAIFENESIN [Concomitant]
     Active Substance: GUAIFENESIN
     Indication: Chronic obstructive pulmonary disease
     Dosage: 400 MG, BID
     Route: 048
     Dates: start: 20200307
  10. ALBUTEROL\IPRATROPIUM [Concomitant]
     Active Substance: ALBUTEROL\IPRATROPIUM
     Indication: Wheezing
     Dosage: 1 DF EVERY 4 HOURS AS NEEDED
     Route: 048
     Dates: start: 20200525
  11. LORAZEPAM [Concomitant]
     Active Substance: LORAZEPAM
     Indication: Agitation
     Dosage: 0.25 ML EVERY 2 HOURS AS NEEDED
     Route: 048
     Dates: start: 20210213
  12. LORAZEPAM [Concomitant]
     Active Substance: LORAZEPAM
     Indication: Anxiety
  13. MORPHINE SULFATE [Concomitant]
     Active Substance: MORPHINE SULFATE
     Indication: Pain
     Dosage: 0.25 ML EVERY 2 HOURS AS NEEDED
     Route: 048
     Dates: start: 20210213
  14. MORPHINE SULFATE [Concomitant]
     Active Substance: MORPHINE SULFATE
     Dosage: 0.5 ML EVERY 2 HOURS AS NEEDED
     Route: 048
     Dates: start: 20210213
  15. MYLANTA [Concomitant]
     Active Substance: ALUMINUM HYDROXIDE\DIMETHICONE\MAGNESIUM HYDROXIDE
     Indication: Dyspepsia
     Dosage: 30 ML EVERY 8 HOURS AS NEEDED
     Route: 048
     Dates: start: 20200303
  16. PANTOPRAZOLE SODIUM [Concomitant]
     Active Substance: PANTOPRAZOLE SODIUM
     Indication: Dyspepsia
     Dosage: 1 DF, BID (BEFORE BREAKFAST AND AT BEDTIME)
     Route: 048
     Dates: start: 20200921
  17. PROMETHAZINE HYDROCHLORIDE [Concomitant]
     Active Substance: PROMETHAZINE HYDROCHLORIDE
     Indication: Nausea
     Dosage: EVERY 4 HOURS AS NEEDED
     Route: 061
     Dates: start: 20210213
  18. DOCUSATE SODIUM\SENNOSIDES A AND B [Concomitant]
     Active Substance: DOCUSATE SODIUM\SENNOSIDES A AND B
     Indication: Constipation
     Dosage: 2 DF, QD
     Route: 048
     Dates: start: 20200724
  19. TRAMADOL HCL [Concomitant]
     Active Substance: TRAMADOL HYDROCHLORIDE
     Indication: Back pain
     Dosage: 50 MG EVERY 6 HOURS AS NEEDED
     Route: 048
     Dates: start: 20200901
  20. TRAMADOL HCL [Concomitant]
     Active Substance: TRAMADOL HYDROCHLORIDE
     Dosage: 50 MG EVERY 6 HOURS AS NEEDED
     Route: 048
     Dates: start: 20200528
  21. TRAZODONE HCL [Concomitant]
     Active Substance: TRAZODONE HYDROCHLORIDE
     Indication: Major depression
     Dosage: 100 MG, QD
     Route: 048
     Dates: start: 20191115
  22. TRAZODONE HCL [Concomitant]
     Active Substance: TRAZODONE HYDROCHLORIDE
     Indication: Insomnia
  23. VISTARIL [Concomitant]
     Active Substance: HYDROXYZINE PAMOATE
     Indication: Pruritus
     Dosage: 1 DF EVERY 6 HOURS AS NEEDED
     Route: 048
     Dates: start: 20191227
  24. ZOFRAN [Concomitant]
     Active Substance: ONDANSETRON HYDROCHLORIDE
     Indication: Nausea
     Dosage: 1 DF, Q3HR AS NEEDED
     Route: 060
     Dates: start: 20191129
  25. ZYPREXA [Concomitant]
     Active Substance: OLANZAPINE
     Indication: Delusional disorder, unspecified type
     Dosage: 5 MG, BID
     Route: 048
     Dates: start: 20201217

REACTIONS (1)
  - Death [Fatal]
